FAERS Safety Report 8336248-3 (Version None)
Quarter: 2012Q2

REPORT INFORMATION
  Report Type: 
  Country: None (occurrence: None)
  Receive Date: 20120501
  Receipt Date: 20120418
  Transmission Date: 20120825
  Serious: Yes (Hospitalization)
  Sender: FDA-Public Use
  Company Number: DSA_56258_2012

PATIENT
  Age: 62 Year
  Sex: Female

DRUGS (1)
  1. FLAGYL [Suspect]
     Indication: TOOTH INFECTION
     Dosage: (1.2 G QD ORAL)
     Route: 048
     Dates: start: 20120215

REACTIONS (5)
  - PARAESTHESIA [None]
  - URTICARIA [None]
  - PRURITUS GENERALISED [None]
  - RASH [None]
  - ERYTHEMA [None]
